FAERS Safety Report 9444222 (Version 1)
Quarter: 2013Q3

REPORT INFORMATION
  Report Type: Spontaneous
  Country: US (occurrence: None)
  Receive Date: 20130726
  Receipt Date: 20130726
  Transmission Date: 20140515
  Serious: No
  Sender: FDA-Public Use
  Company Number: US-145456

PATIENT
  Age: 15 Day
  Sex: Male
  Weight: 3.7 kg

DRUGS (1)
  1. BOTULISM ANTITOXIN [Suspect]
     Indication: BOTULISM
     Dosage: 0132 ML PER MINUTE FOR 2 HOURS 8 MINS,  (NOT OTHERWISE SPECIFIED)
     Route: 042
     Dates: start: 20130622, end: 20130622

REACTIONS (1)
  - Pyrexia [None]
